FAERS Safety Report 9162618 (Version 2)
Quarter: 2013Q1

REPORT INFORMATION
  Report Type: Spontaneous
  Country: US (occurrence: None)
  Receive Date: 20130312
  Receipt Date: 20130327
  Transmission Date: 20140127
  Serious: Yes (Death)
  Sender: FDA-Public Use
  Company Number: FK201300714

PATIENT
  Age: 28 Year
  Sex: Male
  Weight: 76.2 kg

DRUGS (26)
  1. MIDAZOLAM HYDROCHLORIDE INJECTION (MIDAZOLAM HYDROCHLORIDE) (MIDAZOLAM HYDROCHLORIDE) [Suspect]
     Indication: SEDATION
     Route: 042
     Dates: start: 20130129, end: 20130129
  2. FENTANYL (FENTANYL) [Suspect]
     Indication: SEDATION
     Dates: start: 20130126, end: 20130129
  3. APAP (PARACETAMOL) (PARACETAMOL) [Concomitant]
  4. AMPICILLIN/SULBACTAM (DUOCID) (DUOCID) [Concomitant]
  5. BROMOCRIPTINE (BROMOCRIPTINE) (BROMOCRIPTINE) [Concomitant]
  6. CEFAZOLIN (CEFAZOLIN) (CEFAZOLIN) [Concomitant]
  7. CEFEPIME (CEFEPIME) (CEFEPIME) [Concomitant]
  8. CHLORHEXIDINE (CHLORHEXIDINE) (CHLORHEXIDINE) [Concomitant]
  9. CISATRACURIUM (CISARTRACURIUM) (CISATRACURIUM) [Concomitant]
  10. DOCUSATE (DOCUSATE) (DOCUSATE) [Concomitant]
  11. HEPARIN (HEPARIN) (HEPARIN) [Concomitant]
  12. INSULIN (INSULIN) (INSULIN) [Concomitant]
  13. IOHEXOL (IOHEXOL) (IOHEXOL) [Concomitant]
  14. LORAZEPAM (LORAZEPAM) [Concomitant]
  15. MAGNESIUM SULFAT (MAGNESIUM SULFATE) (MAGNESIUM SULFATE) [Concomitant]
  16. MANNITOL (MANNITOL) MANNITOL) [Concomitant]
  17. NORMAL SALINE WITH KCL (SODIUM CHLORIDE) (SODIUM CHLORIDE) [Concomitant]
  18. PANTOPRAZOL (PANTOPRAZOLE SODIUM) (PANTOPRAZOLE SODIUM) [Concomitant]
  19. PHENYTOIN (PHENYTOIN) (PHENYTOIN) [Concomitant]
  20. KCL (POTASSIUM CHLORIDE) (POTASSIUM CHLORIDE) [Concomitant]
  21. PROPOFOL (PROPOFOL) (PROPOFOL) [Concomitant]
  22. PROPRANOLOL (PROPOFOL) (PROPOFOL) [Concomitant]
  23. SENNA (SENNA ALEXANDRINA) [Concomitant]
  24. SODIUM CHLORIDE (SODIUM CHLORIDE) (SODIUM CHLORIDE) [Concomitant]
  25. VANCOMYCIN (VANCOMYCIN) (VANCOMYCIN) [Concomitant]
  26. VASOPRESSIN (VASOPRESSIN INJECTION) (VASOPRESSIN INJECTION) [Concomitant]

REACTIONS (8)
  - Pyrexia [None]
  - Infusion related reaction [None]
  - Product contamination [None]
  - Diabetes insipidus [None]
  - Pneumonia [None]
  - Haemodynamic instability [None]
  - Hypotension [None]
  - Cardiac arrest [None]
